FAERS Safety Report 4994636-7 (Version None)
Quarter: 2006Q2

REPORT INFORMATION
  Report Type: 
  Country: None (occurrence: None)
  Receive Date: 20060505
  Receipt Date: 20060427
  Transmission Date: 20061013
  Serious: Yes (Hospitalization, Other)
  Sender: FDA-Public Use
  Company Number: US-MERCK-0604USA04308

PATIENT
  Sex: Female

DRUGS (2)
  1. VYTORIN [Suspect]
     Indication: BLOOD CHOLESTEROL
     Route: 048
     Dates: start: 20060317, end: 20060101
  2. LEVOXYL [Concomitant]
     Route: 065

REACTIONS (2)
  - ADVERSE EVENT [None]
  - ATRIAL FIBRILLATION [None]
